FAERS Safety Report 19330759 (Version 2)
Quarter: 2021Q2

REPORT INFORMATION
  Report Type: Spontaneous
  Country: NL (occurrence: NL)
  Receive Date: 20210528
  Receipt Date: 20210607
  Transmission Date: 20210717
  Serious: Yes (Death, Hospitalization, Other)
  Sender: FDA-Public Use
  Company Number: NL-PFIZER INC-2021552512

PATIENT
  Age: 68 Year
  Sex: Male

DRUGS (1)
  1. RITUXIMAB. [Suspect]
     Active Substance: RITUXIMAB
     Indication: CHRONIC LYMPHOCYTIC LEUKAEMIA
     Dosage: 6 COURSES
     Route: 065

REACTIONS (1)
  - Progressive multifocal leukoencephalopathy [Fatal]
